FAERS Safety Report 5150501-6 (Version None)
Quarter: 2006Q4

REPORT INFORMATION
  Report Type: 
  Country: None (occurrence: None)
  Receive Date: 20061114
  Receipt Date: 20061018
  Transmission Date: 20070319
  Serious: Yes (Other)
  Sender: FDA-Public Use
  Company Number: JP-JPN-A200604387

PATIENT
  Age: 55 Year
  Sex: Male
  Weight: 56 kg

DRUGS (15)
  1. PAXIL [Suspect]
     Indication: PSYCHOTIC DISORDER
     Route: 048
  2. PERPHENAZINE [Suspect]
     Indication: PSYCHOTIC DISORDER
     Dosage: 2MG TWICE PER DAY
     Route: 048
  3. SOLANAX [Concomitant]
     Indication: PSYCHOTIC DISORDER
     Dosage: 2.4MG PER DAY
     Route: 048
  4. LORAZEPAM [Concomitant]
     Indication: PSYCHOTIC DISORDER
     Dosage: 1MG PER DAY
     Route: 048
  5. DEPAS [Concomitant]
     Indication: PSYCHOTIC DISORDER
     Route: 048
  6. VEGETAMIN-B [Concomitant]
     Indication: INSOMNIA
     Route: 048
  7. EURODIN [Concomitant]
     Indication: INSOMNIA
     Dosage: 2MG PER DAY
     Route: 048
  8. PROHEPARUM [Concomitant]
     Indication: LIVER DISORDER
     Route: 048
  9. GLYCYRON [Concomitant]
     Indication: LIVER DISORDER
     Route: 048
  10. RISPERDAL [Concomitant]
     Indication: PSYCHOTIC DISORDER
     Route: 048
  11. AKINETON [Concomitant]
     Indication: PARKINSONISM
     Dosage: 3MG PER DAY
     Route: 048
  12. SENNOSIDE [Concomitant]
     Indication: CONSTIPATION
     Dosage: 24MG PER DAY
     Route: 048
  13. PANTOSIN [Concomitant]
     Indication: CONSTIPATION
     Route: 048
  14. MAGNESIUM OXIDE [Concomitant]
     Indication: CONSTIPATION
     Route: 048
  15. DAISAIKOTO [Concomitant]
     Indication: CONSTIPATION
     Route: 048
     Dates: start: 20060708

REACTIONS (4)
  - DYSKINESIA [None]
  - HALLUCINATION, AUDITORY [None]
  - OBSESSIVE-COMPULSIVE DISORDER [None]
  - TONGUE PARALYSIS [None]
